FAERS Safety Report 4501171-9 (Version None)
Quarter: 2004Q3

REPORT INFORMATION
  Report Type: 
  Country: None (occurrence: None)
  Receive Date: 20040927
  Receipt Date: 20040812
  Transmission Date: 20050211
  Serious: No
  Sender: FDA-Public Use
  Company Number: USA040875356

PATIENT
  Age: 10 Year
  Sex: Male
  Weight: 39 kg

DRUGS (1)
  1. STRATTERA [Suspect]
     Indication: DISTURBANCE IN ATTENTION
     Dosage: 40 MG DAY
     Dates: start: 20040802

REACTIONS (5)
  - AGITATION [None]
  - CRYING [None]
  - IRRITABILITY [None]
  - LOGORRHOEA [None]
  - PSYCHOMOTOR HYPERACTIVITY [None]
